FAERS Safety Report 7917837-4 (Version None)
Quarter: 2011Q4

REPORT INFORMATION
  Report Type: 
  Country: None (occurrence: None)
  Receive Date: 20111116
  Receipt Date: 20111104
  Transmission Date: 20120403
  Serious: Yes (Death)
  Sender: FDA-Public Use
  Company Number: PHHO2011US11801

PATIENT
  Sex: Male

DRUGS (5)
  1. ZORTRESS [Suspect]
     Indication: HEART TRANSPLANT
     Dosage: 0.5 MG, BID
     Route: 048
     Dates: start: 20041204
  2. NEORAL [Suspect]
     Indication: HEART TRANSPLANT
     Dosage: UNK
     Route: 048
     Dates: start: 20031014
  3. ACE INHIBITORS [Concomitant]
  4. ANALGESICS [Concomitant]
  5. DIURETICS [Concomitant]

REACTIONS (1)
  - CONCOMITANT DISEASE PROGRESSION [None]
